FAERS Safety Report 9380217 (Version 1)
Quarter: 2013Q3

REPORT INFORMATION
  Report Type: Report from Study
  Country: CO (occurrence: CO)
  Receive Date: 20130702
  Receipt Date: 20130702
  Transmission Date: 20140515
  Serious: Yes (Hospitalization)
  Sender: FDA-Public Use
  Company Number: CO-SANOFI-AVENTIS-2013SA065872

PATIENT
  Age: 70 Year
  Sex: Female

DRUGS (3)
  1. LANTUS [Suspect]
     Indication: DIABETES MELLITUS
     Dosage: DOSE:12 UNIT(S)
     Route: 058
  2. LANTUS [Suspect]
     Indication: DIABETES MELLITUS
     Route: 058
  3. LOSARTAN [Suspect]
     Indication: HYPERTENSION
     Route: 048

REACTIONS (1)
  - Renal failure acute [Recovered/Resolved]
